FAERS Safety Report 21212759 (Version 6)
Quarter: 2023Q2

REPORT INFORMATION
  Report Type: Spontaneous
  Country: CA (occurrence: CA)
  Receive Date: 20220815
  Receipt Date: 20230609
  Transmission Date: 20230721
  Serious: Yes (Other)
  Sender: FDA-Public Use
  Company Number: CA-PFIZER INC-202201041467

PATIENT
  Age: 20 Year
  Sex: Female

DRUGS (2)
  1. ABRILADA [Suspect]
     Active Substance: ADALIMUMAB-AFZB
     Indication: Hidradenitis
     Dosage: 40 MG, WEEKLY
     Route: 058
     Dates: start: 202204
  2. ABRILADA [Suspect]
     Active Substance: ADALIMUMAB-AFZB
     Dosage: 40 MG, WEEKLY, (PEN/SYRINGE UNKNOWN)
     Route: 058
     Dates: start: 20220427, end: 2023

REACTIONS (13)
  - Weight increased [Unknown]
  - Discomfort [Unknown]
  - Injection site pain [Unknown]
  - Injection site swelling [Unknown]
  - Body temperature fluctuation [Unknown]
  - Frustration tolerance decreased [Unknown]
  - Hyperhidrosis [Not Recovered/Not Resolved]
  - Flushing [Unknown]
  - Swelling [Unknown]
  - Rash [Not Recovered/Not Resolved]
  - Anxiety [Not Recovered/Not Resolved]
  - Off label use [Unknown]
  - Off label use [Unknown]

NARRATIVE: CASE EVENT DATE: 20220101
